FAERS Safety Report 6277506-6 (Version None)
Quarter: 2009Q3

REPORT INFORMATION
  Report Type: 
  Country: None (occurrence: None)
  Receive Date: 20090717
  Receipt Date: 20090717
  Transmission Date: 20100115
  Serious: Yes (Other)
  Sender: FDA-Public Use
  Company Number: None

PATIENT
  Age: 67 Year
  Sex: Male
  Weight: 71 kg

DRUGS (7)
  1. ROCURONIUM BROMIDE [Suspect]
     Indication: GASTROINTESTINAL SURGERY
     Dosage: 100 MG X1 IV BOLUS
     Route: 040
     Dates: start: 20090707, end: 20090707
  2. SUBLIMAZE PRESERVATIVE FREE [Concomitant]
  3. GLYCOPYRROLATE [Concomitant]
  4. MIDAZOLAM HCL [Concomitant]
  5. NEOSTIGMINE [Concomitant]
  6. PHENYLEPHRINE [Concomitant]
  7. PROPOFOL [Concomitant]

REACTIONS (2)
  - MUSCLE TWITCHING [None]
  - PRODUCT SUBSTITUTION ISSUE [None]
